FAERS Safety Report 8979397 (Version 2)
Quarter: 2013Q1

REPORT INFORMATION
  Report Type: Spontaneous
  Country: EE (occurrence: EE)
  Receive Date: 20121221
  Receipt Date: 20130128
  Transmission Date: 20140127
  Serious: Yes (Other)
  Sender: FDA-Public Use
  Company Number: EE-ROCHE-1172063

PATIENT
  Age: 60 Year
  Sex: Female

DRUGS (3)
  1. MABTHERA [Suspect]
     Indication: RHEUMATOID ARTHRITIS
     Route: 042
     Dates: start: 20080208, end: 20080222
  2. MABTHERA [Suspect]
     Route: 042
     Dates: start: 20090622, end: 20111114
  3. METHYLPREDNISOLON [Concomitant]
     Indication: RHEUMATOID ARTHRITIS
     Dosage: 4-12 MG
     Route: 048

REACTIONS (4)
  - Vaginal cancer [Recovering/Resolving]
  - Uterine cancer [Unknown]
  - Vaginal dysplasia [Not Recovered/Not Resolved]
  - Uterine carcinoma in situ [Recovered/Resolved]
